FAERS Safety Report 24811542 (Version 2)
Quarter: 2025Q1

REPORT INFORMATION
  Report Type: Spontaneous
  Country: US (occurrence: US)
  Receive Date: 20250106
  Receipt Date: 20250219
  Transmission Date: 20250408
  Serious: No
  Sender: INSUD PHARMA
  Company Number: US-INSUD PHARMA-2412US09958

PATIENT

DRUGS (1)
  1. FOSFOMYCIN [Suspect]
     Active Substance: FOSFOMYCIN
     Indication: Urinary tract infection
     Route: 048
     Dates: start: 20241219

REACTIONS (4)
  - Cystitis interstitial [Recovering/Resolving]
  - Condition aggravated [Recovering/Resolving]
  - Urinary tract pain [Recovering/Resolving]
  - Dysuria [Recovering/Resolving]

NARRATIVE: CASE EVENT DATE: 20241201
